FAERS Safety Report 6159521-6 (Version None)
Quarter: 2009Q2

REPORT INFORMATION
  Report Type: 
  Country: None (occurrence: None)
  Receive Date: 20090420
  Receipt Date: 20080609
  Transmission Date: 20091009
  Serious: No
  Sender: FDA-Public Use
  Company Number: US-ABBOTT-08P-163-0455846-00

PATIENT
  Sex: Female
  Weight: 29.51 kg

DRUGS (9)
  1. LUPRON DEPOT-PED [Suspect]
     Indication: PRECOCIOUS PUBERTY
     Route: 030
     Dates: end: 20080101
  2. LUPRON DEPOT-PED [Suspect]
     Dates: start: 20080101, end: 20080507
  3. CETIRIZINE HYDROCHLORIDE [Concomitant]
     Indication: HYPERSENSITIVITY
     Route: 048
  4. ENALAPRIL MALEATE [Concomitant]
     Indication: LEFT VENTRICULAR HYPERTROPHY
     Route: 048
  5. ENALAPRIL MALEATE [Concomitant]
     Indication: HYPERTENSION
  6. ATENOLOL [Concomitant]
     Indication: LEFT VENTRICULAR HYPERTROPHY
     Route: 048
  7. ATENOLOL [Concomitant]
     Indication: HYPERTENSION
  8. CLONIDINE [Concomitant]
     Indication: INITIAL INSOMNIA
     Route: 048
  9. RISPERIDONE [Concomitant]
     Indication: ATTENTION DEFICIT/HYPERACTIVITY DISORDER
     Route: 048

REACTIONS (2)
  - ALOPECIA [None]
  - NEUTROPENIA [None]
